FAERS Safety Report 5927572-X (Version None)
Quarter: 2008Q4

REPORT INFORMATION
  Report Type: 
  Country: None (occurrence: None)
  Receive Date: 20081021
  Receipt Date: 20081021
  Transmission Date: 20090506
  Serious: Yes (Other)
  Sender: FDA-Public Use
  Company Number: None

PATIENT
  Sex: Male
  Weight: 86.1834 kg

DRUGS (1)
  1. TRAZODONE HCL [Suspect]
     Indication: SLEEP DISORDER
     Dosage: 100 MG ONCE BEFORE BEDTIM PO
     Route: 048
     Dates: start: 20081015, end: 20081019

REACTIONS (4)
  - DEAFNESS UNILATERAL [None]
  - ERECTION INCREASED [None]
  - PAINFUL ERECTION [None]
  - PRODUCT QUALITY ISSUE [None]
